FAERS Safety Report 13738454 (Version 2)
Quarter: 2018Q2

REPORT INFORMATION
  Report Type: Report from Study
  Country: US (occurrence: US)
  Receive Date: 20170710
  Receipt Date: 20180627
  Transmission Date: 20180711
  Serious: Yes (Other)
  Sender: FDA-Public Use
  Company Number: US-SAOL THERAPEUTICS-2016SAO01246

PATIENT
  Age: 72 Year
  Sex: Male

DRUGS (43)
  1. DILAUDID [Suspect]
     Active Substance: HYDROMORPHONE HYDROCHLORIDE
     Dosage: 1.084 MG, \DAY, MAX DOSE
     Route: 037
     Dates: start: 20171027, end: 20171115
  2. COMPOUNDED BACLOFEN [Suspect]
     Active Substance: BACLOFEN
     Dosage: 86.62 ?G, \DAY
     Route: 037
     Dates: start: 20170713, end: 20171027
  3. COMPOUNDED BACLOFEN [Suspect]
     Active Substance: BACLOFEN
     Dosage: 124.23 ?G, \DAY, MAX DOSE
     Route: 037
     Dates: start: 20170713, end: 20171027
  4. BUPIVACAINE. [Suspect]
     Active Substance: BUPIVACAINE
     Dosage: 15.398 MG, \DAY
     Route: 037
     Dates: start: 20171027, end: 20171115
  5. DILAUDID [Suspect]
     Active Substance: HYDROMORPHONE HYDROCHLORIDE
     Dosage: 0.931 MG, \DAY, MAX DOSE
     Route: 037
     Dates: start: 20170713, end: 20171027
  6. COMPOUNDED BACLOFEN [Suspect]
     Active Substance: BACLOFEN
     Indication: PELVIC PAIN
     Dosage: 87.23 ?G, \DAY
     Route: 037
     Dates: start: 20150615, end: 20170713
  7. COMPOUNDED BACLOFEN [Suspect]
     Active Substance: BACLOFEN
     Dosage: 26.65 ?G, \DAY
     Route: 037
     Dates: start: 20171121, end: 20180105
  8. COMPOUNDED BACLOFEN [Suspect]
     Active Substance: BACLOFEN
     Dosage: 40 ?G, \DAY
     Route: 037
     Dates: start: 20180105
  9. BUPIVACAINE. [Suspect]
     Active Substance: BUPIVACAINE
     Dosage: 6.001 MG, \DAY
     Route: 037
     Dates: start: 20171115, end: 20171116
  10. BUPIVACAINE. [Suspect]
     Active Substance: BUPIVACAINE
     Dosage: 6.506 MG, \DAY, MAX DOSE
     Route: 037
     Dates: start: 20171116, end: 20171121
  11. BUPIVACAINE. [Suspect]
     Active Substance: BUPIVACAINE
     Dosage: 5.718 MG, \DAY
     Route: 037
     Dates: start: 20171121, end: 20180105
  12. DILAUDID [Suspect]
     Active Substance: HYDROMORPHONE HYDROCHLORIDE
     Dosage: 0.240 MG, \DAY
     Route: 037
     Dates: start: 20171116, end: 20171121
  13. DILAUDID [Suspect]
     Active Substance: HYDROMORPHONE HYDROCHLORIDE
     Dosage: 0.285 MG, \DAY
     Route: 037
     Dates: start: 20171121, end: 20180105
  14. DILAUDID [Suspect]
     Active Substance: HYDROMORPHONE HYDROCHLORIDE
     Dosage: 0.300 MG, \DAY
     Route: 037
     Dates: start: 20180105
  15. COMPOUNDED BACLOFEN [Suspect]
     Active Substance: BACLOFEN
     Dosage: 51.19 ?G, \DAY, MAX DOSE
     Route: 037
     Dates: start: 20171115, end: 20171116
  16. BUPIVACAINE. [Suspect]
     Active Substance: BUPIVACAINE
     Dosage: 4.803 MG, \DAY
     Route: 037
     Dates: start: 20171116, end: 20171121
  17. DILAUDID [Suspect]
     Active Substance: HYDROMORPHONE HYDROCHLORIDE
     Dosage: 0.6542  MG, \DAY
     Route: 037
     Dates: start: 20150615, end: 20170713
  18. COMPOUNDED BACLOFEN [Suspect]
     Active Substance: BACLOFEN
     Dosage: 102.66 ?G, \DAY
     Route: 037
     Dates: start: 20171027, end: 20171115
  19. DILAUDID [Suspect]
     Active Substance: HYDROMORPHONE HYDROCHLORIDE
     Dosage: 0.649 MG, \DAY
     Route: 037
     Dates: start: 20170713, end: 20171027
  20. DILAUDID [Suspect]
     Active Substance: HYDROMORPHONE HYDROCHLORIDE
     Dosage: 0.383 MG, \DAY, MAX DOSE
     Route: 037
     Dates: start: 20171115, end: 20171116
  21. COMPOUNDED BACLOFEN [Suspect]
     Active Substance: BACLOFEN
     Dosage: 144.56 ?G, \DAY, MAX DOSE
     Route: 037
     Dates: start: 20171027, end: 20171115
  22. COMPOUNDED BACLOFEN [Suspect]
     Active Substance: BACLOFEN
     Dosage: UNK
     Dates: start: 20180105
  23. BUPIVACAINE. [Suspect]
     Active Substance: BUPIVACAINE
     Dosage: 18.634 MG, \DAY, MAX DOSE
     Route: 037
     Dates: start: 20170713, end: 20171027
  24. BUPIVACAINE. [Suspect]
     Active Substance: BUPIVACAINE
     Dosage: 21.684 MG, \DAY, MAX DOSE
     Route: 037
     Dates: start: 20171027, end: 20171115
  25. BUPIVACAINE. [Suspect]
     Active Substance: BUPIVACAINE
     Dosage: 7.728 MG, \DAY, MAX DOSE
     Route: 037
     Dates: start: 20180105
  26. DILAUDID [Suspect]
     Active Substance: HYDROMORPHONE HYDROCHLORIDE
     Dosage: 0.9363 MG, \DAY, MAX DOSE
     Route: 037
     Dates: start: 20150615, end: 20170713
  27. DILAUDID [Suspect]
     Active Substance: HYDROMORPHONE HYDROCHLORIDE
     Dosage: 0.325 MG, \DAY. MAX DOSE
     Route: 037
     Dates: start: 20171116, end: 20171121
  28. COMPOUNDED BACLOFEN [Suspect]
     Active Substance: BACLOFEN
     Dosage: 32.02 ?G, \DAY
     Route: 037
     Dates: start: 20171116, end: 20171121
  29. COMPOUNDED BACLOFEN [Suspect]
     Active Substance: BACLOFEN
     Dosage: 43.37 ?G, \DAY, MAX DOSE
     Route: 037
     Dates: start: 20171116, end: 20171121
  30. BUPIVACAINE. [Suspect]
     Active Substance: BUPIVACAINE
     Dosage: 18.726 MG, \DAY, MAX DOSE
     Route: 037
     Dates: start: 20150615, end: 20170713
  31. BUPIVACAINE. [Suspect]
     Active Substance: BUPIVACAINE
     Dosage: 12.992 MG, \DAY
     Route: 037
     Dates: start: 20170713, end: 20171027
  32. BUPIVACAINE. [Suspect]
     Active Substance: BUPIVACAINE
     Dosage: 3.998 MG, \DAY
     Route: 037
     Dates: start: 20171121, end: 20180105
  33. BUPIVACAINE. [Suspect]
     Active Substance: BUPIVACAINE
     Dosage: 6.001 MG, \DAY
     Route: 037
     Dates: start: 20180105
  34. DILAUDID [Suspect]
     Active Substance: HYDROMORPHONE HYDROCHLORIDE
     Dosage: 0.769 MG, \DAY
     Route: 037
     Dates: start: 20171027, end: 20171115
  35. COMPOUNDED BACLOFEN [Suspect]
     Active Substance: BACLOFEN
     Dosage: 124.84 ?G, \DAY, MAX DOSE
     Route: 037
     Dates: start: 20150615, end: 20170713
  36. COMPOUNDED BACLOFEN [Suspect]
     Active Substance: BACLOFEN
     Dosage: 40.00 ?G, \DAY
     Route: 037
     Dates: start: 20171115, end: 20171116
  37. COMPOUNDED BACLOFEN [Suspect]
     Active Substance: BACLOFEN
     Dosage: 38.12 ?G, \DAY, MAX DOSE
     Route: 037
     Dates: start: 20171121
  38. COMPOUNDED BACLOFEN [Suspect]
     Active Substance: BACLOFEN
     Dosage: 51.52 ?G, \DAY, MAX DOSE
     Route: 037
  39. BUPIVACAINE. [Suspect]
     Active Substance: BUPIVACAINE
     Dosage: 13.084 MG, \DAY
     Route: 037
     Dates: start: 20150615, end: 20170713
  40. BUPIVACAINE. [Suspect]
     Active Substance: BUPIVACAINE
     Dosage: 7.679 MG, \DAY, MAX DOSE
     Route: 037
     Dates: start: 20171115, end: 20171116
  41. DILAUDID [Suspect]
     Active Substance: HYDROMORPHONE HYDROCHLORIDE
     Dosage: 0.300 MG, \DAY
     Route: 037
     Dates: start: 20171115, end: 20171116
  42. DILAUDID [Suspect]
     Active Substance: HYDROMORPHONE HYDROCHLORIDE
     Dosage: 0.199 MG, \DAY
     Route: 037
     Dates: start: 20171121, end: 20180105
  43. DILAUDID [Suspect]
     Active Substance: HYDROMORPHONE HYDROCHLORIDE
     Dosage: 0.386 MG, \DAY
     Route: 037
     Dates: start: 20180105

REACTIONS (8)
  - Drug withdrawal syndrome [Recovered/Resolved]
  - Device failure [Recovered/Resolved]
  - Therapeutic response decreased [Recovered/Resolved]
  - Device occlusion [Recovered/Resolved]
  - Pain [Not Recovered/Not Resolved]
  - Hypoaesthesia [Recovered/Resolved]
  - Paraesthesia [Recovered/Resolved]
  - Device kink [Recovered/Resolved]

NARRATIVE: CASE EVENT DATE: 20150810
